FAERS Safety Report 8358466-0 (Version None)
Quarter: 2012Q2

REPORT INFORMATION
  Report Type: 
  Country: None (occurrence: None)
  Receive Date: 20120514
  Receipt Date: 20120508
  Transmission Date: 20120825
  Serious: Yes (Life-Threatening, Hospitalization)
  Sender: FDA-Public Use
  Company Number: GXKR2008DK11597

PATIENT
  Sex: Female
  Weight: 70 kg

DRUGS (5)
  1. TRAMADOL HYDROCHLORIDE [Suspect]
  2. DICLOFENAC SODIUM [Suspect]
     Indication: BACK PAIN
     Route: 048
     Dates: start: 20040429, end: 20040429
  3. PAROXETINE HYDROCHLORIDE [Suspect]
     Dosage: 30 MG, UNK
     Dates: start: 20020701
  4. DESOGESTREL AND ETHINYL ESTRADIOL [Suspect]
     Indication: CONTRACEPTION
     Route: 048
     Dates: start: 20040425, end: 20040527
  5. AKARIN [Concomitant]
     Indication: DEPRESSION
     Dosage: 40 MG, QD

REACTIONS (15)
  - DEPRESSED LEVEL OF CONSCIOUSNESS [None]
  - VOMITING [None]
  - PARAESTHESIA [None]
  - HEADACHE [None]
  - MEMORY IMPAIRMENT [None]
  - WEIGHT INCREASED [None]
  - SEROTONIN SYNDROME [None]
  - PALPITATIONS [None]
  - ACUTE MYOCARDIAL INFARCTION [None]
  - CHEST PAIN [None]
  - HYPERHIDROSIS [None]
  - RESTLESSNESS [None]
  - CARDIAC ARREST [None]
  - NAUSEA [None]
  - BACK PAIN [None]
